FAERS Safety Report 4702880-9 (Version None)
Quarter: 2005Q2

REPORT INFORMATION
  Report Type: 
  Country: None (occurrence: None)
  Receive Date: 20050629
  Receipt Date: 20050615
  Transmission Date: 20051028
  Serious: Yes (Hospitalization)
  Sender: FDA-Public Use
  Company Number: JP-JNJFOC-20050604038

PATIENT
  Age: 97 Year
  Sex: Male

DRUGS (10)
  1. OFLOCET [Suspect]
     Route: 049
     Dates: start: 20050310, end: 20050322
  2. OFLOCET [Suspect]
     Route: 049
     Dates: start: 20050310, end: 20050322
  3. CORTANCYL [Interacting]
     Route: 049
     Dates: start: 20050201
  4. CORDARONE [Interacting]
     Indication: ATRIAL FIBRILLATION
     Dosage: 100MG DAILY 5 DAYS PER WEEK
     Route: 049
  5. COUMADIN [Interacting]
     Indication: DRUG USE FOR UNKNOWN INDICATION
     Route: 049
     Dates: end: 20050321
  6. OMEPRAZOLE [Interacting]
     Indication: DRUG USE FOR UNKNOWN INDICATION
     Route: 049
  7. CACIT D3 [Concomitant]
     Route: 049
     Dates: start: 20050201, end: 20050321
  8. CACIT D3 [Concomitant]
     Route: 049
     Dates: start: 20050201, end: 20050321
  9. LASIX [Concomitant]
     Route: 049
  10. LEXOMIL [Concomitant]
     Route: 049

REACTIONS (3)
  - DRUG INTERACTION [None]
  - INTERNATIONAL NORMALISED RATIO INCREASED [None]
  - RECTAL HAEMORRHAGE [None]
